FAERS Safety Report 18386036 (Version 1)
Quarter: 2020Q4

REPORT INFORMATION
  Report Type: Spontaneous
  Country: GB (occurrence: GB)
  Receive Date: 20201015
  Receipt Date: 20201015
  Transmission Date: 20210114
  Serious: Yes (Other)
  Sender: FDA-Public Use
  Company Number: GB-TEVA-2020-GB-1837864

PATIENT
  Age: 82 Year
  Sex: Female

DRUGS (5)
  1. VITAMIN K [Concomitant]
     Active Substance: PHYTONADIONE
     Dosage: 3 DF
  2. LEVOTHYROXINE. [Concomitant]
     Active Substance: LEVOTHYROXINE
  3. WARFARIN [Suspect]
     Active Substance: WARFARIN
     Indication: ATRIAL FIBRILLATION
     Dates: start: 201801, end: 20180420
  4. ELIQUIS [Suspect]
     Active Substance: APIXABAN
     Dosage: 10 MG
     Dates: start: 20180420, end: 201902
  5. ELIQUIS [Suspect]
     Active Substance: APIXABAN
     Dosage: 5 MG
     Dates: start: 201902

REACTIONS (2)
  - Blood urine present [Unknown]
  - Eye haemorrhage [Unknown]

NARRATIVE: CASE EVENT DATE: 20200318
